FAERS Safety Report 7000206-1 (Version None)
Quarter: 2010Q3

REPORT INFORMATION
  Report Type: 
  Country: None (occurrence: None)
  Receive Date: 20100920
  Receipt Date: 20100514
  Transmission Date: 20110219
  Serious: Yes (Hospitalization)
  Sender: FDA-Public Use
  Company Number: US-ASTRAZENECA-2010SE22289

PATIENT
  Sex: Female
  Weight: 83.9 kg

DRUGS (9)
  1. SEROQUEL [Suspect]
     Indication: MANIA
     Route: 048
  2. SEROQUEL [Suspect]
     Route: 048
  3. DIVALPROEX DR [Concomitant]
     Dosage: 500 MG
  4. ESTROGEN [Concomitant]
  5. VITAMIN E [Concomitant]
  6. PYRIDOXINE HCL [Concomitant]
  7. I CAPS [Concomitant]
  8. VITAMIN B COMPLEX CAP [Concomitant]
  9. FISH OIL [Concomitant]

REACTIONS (4)
  - AFFECT LABILITY [None]
  - DRUG INEFFECTIVE [None]
  - MANIA [None]
  - NERVOUSNESS [None]
